FAERS Safety Report 12630249 (Version 2)
Quarter: 2016Q3

REPORT INFORMATION
  Report Type: Report from Study
  Country: KR (occurrence: KR)
  Receive Date: 20160808
  Receipt Date: 20160810
  Transmission Date: 20161109
  Serious: Yes (Hospitalization)
  Sender: FDA-Public Use
  Company Number: KR-JNJFOC-20160711720

PATIENT
  Age: 69 Year
  Sex: Female
  Weight: 47 kg

DRUGS (32)
  1. ESCITALOPRAM [Concomitant]
     Active Substance: ESCITALOPRAM OXALATE
     Indication: SCHIZOPHRENIA
     Dosage: 5 MG
     Route: 048
     Dates: start: 20160531
  2. INVEGA SUSTENNA [Suspect]
     Active Substance: PALIPERIDONE PALMITATE
     Indication: SCHIZOPHRENIA
     Dosage: ADMINISTERED IN GLUTEAL MUSCLE
     Route: 030
     Dates: start: 20160607
  3. ATIVAN [Concomitant]
     Active Substance: LORAZEPAM
     Indication: SCHIZOPHRENIA
     Route: 048
     Dates: start: 20160516
  4. HALOPERIDOL. [Concomitant]
     Active Substance: HALOPERIDOL
     Indication: SCHIZOPHRENIA
     Dosage: 5 MG/ML
     Route: 030
     Dates: start: 20160424, end: 20160424
  5. ABILIFY [Concomitant]
     Active Substance: ARIPIPRAZOLE
     Indication: SCHIZOPHRENIA
     Dosage: 5 MG
     Route: 048
     Dates: start: 20160525, end: 20160525
  6. SEROCOVER [Concomitant]
     Indication: SCHIZOPHRENIA
     Dosage: 5 MG
     Route: 048
     Dates: start: 20160623
  7. MAGMIL [Concomitant]
     Active Substance: MAGNESIUM HYDROXIDE
     Indication: CONSTIPATION
     Dosage: 500 MG
     Route: 065
     Dates: start: 20160504, end: 20160608
  8. ZYPREXA [Concomitant]
     Active Substance: OLANZAPINE
     Indication: SCHIZOPHRENIA
     Dosage: 5 MG/ML
     Route: 048
     Dates: start: 20160520, end: 20160524
  9. ABILIFY [Concomitant]
     Active Substance: ARIPIPRAZOLE
     Indication: SCHIZOPHRENIA
     Dosage: 5 MG/ML
     Route: 048
     Dates: start: 20160526, end: 20160526
  10. ARICEPT [Concomitant]
     Active Substance: DONEPEZIL HYDROCHLORIDE
     Indication: MEMORY IMPAIRMENT
     Dosage: 500 MG
     Route: 065
     Dates: start: 20160516
  11. ZYPREXA [Concomitant]
     Active Substance: OLANZAPINE
     Indication: SCHIZOPHRENIA
     Route: 048
     Dates: start: 20160525, end: 20160525
  12. HALOPERIDOL. [Concomitant]
     Active Substance: HALOPERIDOL
     Indication: SCHIZOPHRENIA
     Dosage: 5 MG/ML
     Route: 030
     Dates: start: 20160406, end: 20160406
  13. BENZTROPINE [Concomitant]
     Active Substance: BENZTROPINE
     Indication: SCHIZOPHRENIA
     Dosage: 5 MG
     Route: 048
     Dates: start: 20160602, end: 20160615
  14. GASMOTIN [Concomitant]
     Active Substance: MOSAPRIDE CITRATE
     Indication: GASTRIC ULCER
     Dosage: 1PACK
     Route: 065
     Dates: start: 20160506, end: 20160506
  15. INVEGA SUSTENNA [Suspect]
     Active Substance: PALIPERIDONE PALMITATE
     Indication: SCHIZOPHRENIA
     Dosage: ADMINISTERED IN DELTOID MUSCLE
     Route: 030
     Dates: start: 20160503
  16. INVEGA SUSTENNA [Suspect]
     Active Substance: PALIPERIDONE PALMITATE
     Indication: SCHIZOPHRENIA
     Dosage: ADMINISTERED IN DELTOID MUSCLE
     Route: 030
     Dates: start: 20160510
  17. INVEGA SUSTENNA [Suspect]
     Active Substance: PALIPERIDONE PALMITATE
     Indication: SCHIZOPHRENIA
     Dosage: ADMINISTERED IN GLUTEAL MUSCLE
     Route: 030
     Dates: start: 20160801
  18. ALPRAM [Concomitant]
     Active Substance: ALPRAZOLAM
     Indication: SCHIZOPHRENIA
     Route: 048
     Dates: start: 20160516
  19. ATIVAN [Concomitant]
     Active Substance: LORAZEPAM
     Indication: SCHIZOPHRENIA
     Dosage: 2 MG/ 0.5 ML
     Route: 030
     Dates: start: 20160405, end: 20160406
  20. ATIVAN [Concomitant]
     Active Substance: LORAZEPAM
     Indication: SCHIZOPHRENIA
     Dosage: 2 MG/ 0.5 ML
     Route: 030
     Dates: start: 20160424, end: 20160424
  21. HALOPERIDOL. [Concomitant]
     Active Substance: HALOPERIDOL
     Indication: SCHIZOPHRENIA
     Dosage: 5 MG/ML
     Route: 030
     Dates: start: 20160412, end: 20160413
  22. ABILIFY [Concomitant]
     Active Substance: ARIPIPRAZOLE
     Indication: SCHIZOPHRENIA
     Dosage: 5 MG/ML
     Route: 048
     Dates: start: 20160527
  23. BENZPIN [Concomitant]
     Indication: SCHIZOPHRENIA
     Dosage: 5 MG
     Route: 048
     Dates: start: 20160616
  24. GASMOTIN [Concomitant]
     Active Substance: MOSAPRIDE CITRATE
     Indication: GASTRIC ULCER
     Dosage: 1PACK
     Route: 065
     Dates: start: 20160529, end: 20160529
  25. ATIVAN [Concomitant]
     Active Substance: LORAZEPAM
     Indication: SCHIZOPHRENIA
     Dosage: 2 MG/ 0.5 ML
     Route: 030
     Dates: start: 20160412, end: 20160413
  26. TAZICEF [Concomitant]
     Active Substance: CEFTAZIDIME
     Indication: PYREXIA
     Dosage: 5 MG
     Route: 065
     Dates: start: 20160502, end: 20160506
  27. NORVASC [Concomitant]
     Active Substance: AMLODIPINE BESYLATE
     Indication: HYPERTENSION
     Dosage: FROM 1 MONTH AGO
     Route: 065
     Dates: start: 20160506
  28. ATIVAN [Concomitant]
     Active Substance: LORAZEPAM
     Indication: SCHIZOPHRENIA
     Route: 048
     Dates: start: 20160409, end: 20160515
  29. ZYPREXA [Concomitant]
     Active Substance: OLANZAPINE
     Indication: SCHIZOPHRENIA
     Dosage: 5 MG/ML
     Route: 048
     Dates: start: 20160519, end: 20160519
  30. DULCOLAX NOS [Concomitant]
     Active Substance: BISACODYL OR DOCUSATE SODIUM
     Indication: CONSTIPATION
     Dosage: 500 MG
     Route: 065
     Dates: start: 20160607, end: 20160607
  31. ZYPREXA [Concomitant]
     Active Substance: OLANZAPINE
     Indication: SCHIZOPHRENIA
     Dosage: 10 MG
     Route: 048
     Dates: start: 20160414, end: 20160518
  32. TYLENOL [Concomitant]
     Active Substance: ACETAMINOPHEN
     Indication: HEADACHE
     Dosage: 500 MG
     Route: 065
     Dates: start: 20160602, end: 20160602

REACTIONS (1)
  - Hyperventilation [Recovered/Resolved]

NARRATIVE: CASE EVENT DATE: 20160712
